FAERS Safety Report 9172409 (Version 1)
Quarter: 2013Q1

REPORT INFORMATION
  Report Type: Spontaneous
  Country: US (occurrence: US)
  Receive Date: 20130319
  Receipt Date: 20130319
  Transmission Date: 20140127
  Serious: Yes (Other)
  Sender: FDA-Public Use
  Company Number: US-BAYER-2013-033886

PATIENT
  Age: 56 Year
  Sex: Female

DRUGS (4)
  1. ALEVE CAPLET/TABLET,MIDOL EXTENDED RELIEF CAPLET [Suspect]
     Indication: ANALGESIC THERAPY
     Dosage: 1 DF, PRN
     Route: 048
     Dates: start: 201303, end: 20130314
  2. TRIAMTERENE AND HYDROCHLOROTHIAZIDE [Concomitant]
  3. ATORVASTATIN [Concomitant]
  4. ALLERGY MEDICATION [Concomitant]

REACTIONS (2)
  - Epistaxis [Recovered/Resolved]
  - Sinusitis [None]
